FAERS Safety Report 6821161-0 (Version None)
Quarter: 2010Q3

REPORT INFORMATION
  Report Type: 
  Country: None (occurrence: None)
  Receive Date: 20100707
  Receipt Date: 20080122
  Transmission Date: 20110219
  Serious: No
  Sender: FDA-Public Use
  Company Number: US-PFIZER INC-2008007113

PATIENT
  Sex: Female
  Weight: 64.41 kg

DRUGS (5)
  1. ZOLOFT [Suspect]
     Indication: POSTPARTUM DEPRESSION
     Dates: start: 20050101
  2. SERTRALINE HCL [Suspect]
     Indication: POSTPARTUM DEPRESSION
  3. SERTRALINE HCL [Suspect]
     Dates: end: 20070501
  4. FLONASE [Concomitant]
  5. NUVARING [Concomitant]

REACTIONS (2)
  - RASH [None]
  - REACTION TO FOOD ADDITIVE [None]
